FAERS Safety Report 23732910 (Version 2)
Quarter: 2024Q2

REPORT INFORMATION
  Report Type: Spontaneous
  Country: JP (occurrence: JP)
  Receive Date: 20240411
  Receipt Date: 20240423
  Transmission Date: 20240716
  Serious: Yes (Other)
  Sender: FDA-Public Use
  Company Number: JP-GENMAB-2024-01148

PATIENT
  Age: 90 Year

DRUGS (2)
  1. EPKINLY [Suspect]
     Active Substance: EPCORITAMAB-BYSP
     Indication: Product used for unknown indication
     Dosage: UNK
     Route: 065
     Dates: start: 20240328, end: 20240328
  2. DEXAMETHASONE [Suspect]
     Active Substance: DEXAMETHASONE
     Indication: Prophylaxis
     Dosage: 15 MILLIGRAM, FOUR DAYS OF ADMINISTRATION
     Route: 048
     Dates: start: 20240328, end: 20240331

REACTIONS (2)
  - Delirium [Recovering/Resolving]
  - Cognitive disorder [Unknown]

NARRATIVE: CASE EVENT DATE: 20240101
